FAERS Safety Report 8692448 (Version 3)
Quarter: 2015Q2

REPORT INFORMATION
  Report Type: Spontaneous
  Country: US (occurrence: US)
  Receive Date: 20120730
  Receipt Date: 20150512
  Transmission Date: 20150821
  Serious: Yes (Hospitalization, Congenital Anomaly, Other)
  Sender: FDA-Public Use
  Company Number: US-ELI_LILLY_AND_COMPANY-US201207005084

PATIENT

DRUGS (14)
  1. AMBIEN [Concomitant]
     Active Substance: ZOLPIDEM TARTRATE
     Route: 064
  2. FOLATE [Concomitant]
     Active Substance: FOLATE SODIUM
     Dosage: 500 UG, UNK
     Route: 064
  3. FOLATE [Concomitant]
     Active Substance: FOLATE SODIUM
     Dosage: 4 MG, QD
     Route: 064
  4. PROZAC [Suspect]
     Active Substance: FLUOXETINE HYDROCHLORIDE
     Indication: DEPRESSION
     Dosage: 20 MG, QD
     Route: 064
  5. FOLATE [Concomitant]
     Active Substance: FOLATE SODIUM
     Dosage: 4 MG, QD
     Route: 064
  6. BUSPAR [Concomitant]
     Active Substance: BUSPIRONE HYDROCHLORIDE
  7. TENORMIN [Concomitant]
     Active Substance: ATENOLOL
     Route: 064
  8. AMBIEN [Concomitant]
     Active Substance: ZOLPIDEM TARTRATE
     Route: 064
  9. BUSPAR [Concomitant]
     Active Substance: BUSPIRONE HYDROCHLORIDE
  10. TENORMIN [Concomitant]
     Active Substance: ATENOLOL
     Route: 064
  11. FOLATE [Concomitant]
     Active Substance: FOLATE SODIUM
     Dosage: 500 UG, UNK
     Route: 064
  12. PROZAC [Suspect]
     Active Substance: FLUOXETINE HYDROCHLORIDE
     Indication: DEPRESSION
     Dosage: 20 MG, QD
     Route: 064
  13. PROZAC [Suspect]
     Active Substance: FLUOXETINE HYDROCHLORIDE
     Dosage: 40 MG, QD
     Route: 064
  14. PROZAC [Suspect]
     Active Substance: FLUOXETINE HYDROCHLORIDE
     Dosage: 40 MG, QD
     Route: 064

REACTIONS (9)
  - Vertical talus [Unknown]
  - Pneumothorax [Recovered/Resolved]
  - Congenital diaphragmatic eventration [Unknown]
  - Atrial septal defect [Recovered/Resolved]
  - Asperger^s disorder [Unknown]
  - Talipes [Unknown]
  - Patent ductus arteriosus [Recovered/Resolved]
  - Aplasia cutis congenita [Recovered/Resolved]
  - Foetal exposure during pregnancy [Recovered/Resolved]
